FAERS Safety Report 8372013-9 (Version None)
Quarter: 2012Q2

REPORT INFORMATION
  Report Type: 
  Country: None (occurrence: None)
  Receive Date: 20120518
  Receipt Date: 20120504
  Transmission Date: 20120825
  Serious: Yes (Other)
  Sender: FDA-Public Use
  Company Number: CHPA2012US010495

PATIENT
  Age: 69 Year
  Sex: Female

DRUGS (4)
  1. EXCEDRIN TENSION HEADACHE CAPLETS [Suspect]
     Indication: ARTHRITIS
     Dosage: 1 DF, PRN
     Route: 048
     Dates: start: 20100101
  2. EXCEDRIN (MIGRAINE) [Suspect]
     Dosage: UNK, UNK
     Route: 048
     Dates: start: 20060101, end: 20100101
  3. ACETAMINOPHEN [Concomitant]
     Dosage: 0.5 DF, UNK
  4. COUMADIN [Concomitant]

REACTIONS (6)
  - PAIN [None]
  - FALL [None]
  - HEAD INJURY [None]
  - BACK PAIN [None]
  - CONTUSION [None]
  - BACK DISORDER [None]
